FAERS Safety Report 5208295-1 (Version None)
Quarter: 2007Q1

REPORT INFORMATION
  Report Type: 
  Country: None (occurrence: None)
  Receive Date: 20070110
  Receipt Date: 20070110
  Transmission Date: 20070707
  Serious: Yes (Hospitalization)
  Sender: FDA-Public Use
  Company Number: None

PATIENT
  Sex: Male
  Weight: 71 kg

DRUGS (5)
  1. TAMIFLU [Suspect]
     Indication: INFLUENZA IMMUNISATION
     Dosage: 75 MG DAILY ORAL
     Route: 048
     Dates: start: 20061216, end: 20061226
  2. RESPIRDAL [Concomitant]
  3. COGENTIN [Concomitant]
  4. ATIVAN [Concomitant]
  5. ABILFY [Concomitant]

REACTIONS (14)
  - ANXIETY [None]
  - ASPARTATE AMINOTRANSFERASE INCREASED [None]
  - CONFUSIONAL STATE [None]
  - COUGH [None]
  - DRUG SCREEN POSITIVE [None]
  - DYSTONIA [None]
  - HALLUCINATION, AUDITORY [None]
  - HALLUCINATION, VISUAL [None]
  - INSOMNIA [None]
  - PARANOIA [None]
  - PSYCHOTIC DISORDER [None]
  - PYREXIA [None]
  - TEARFULNESS [None]
  - VOMITING [None]
